FAERS Safety Report 12255484 (Version 1)
Quarter: 2016Q2

REPORT INFORMATION
  Report Type: Spontaneous
  Country: US (occurrence: US)
  Receive Date: 20160412
  Receipt Date: 20160412
  Transmission Date: 20160815
  Serious: No
  Sender: FDA-Public Use
  Company Number: US-009507513-1604USA007173

PATIENT

DRUGS (1)
  1. INTRON A [Suspect]
     Active Substance: INTERFERON ALFA-2B
     Dosage: 10 MILLION IU, THREE TIMES PER WEEK ON MONDAY, WEDNESDAY, AND FRIDAY

REACTIONS (2)
  - No adverse event [Unknown]
  - Incorrect product storage [Unknown]
